FAERS Safety Report 26155028 (Version 1)
Quarter: 2025Q4

REPORT INFORMATION
  Report Type: Spontaneous
  Country: US (occurrence: US)
  Receive Date: 20251215
  Receipt Date: 20251215
  Transmission Date: 20260117
  Serious: Yes (Life-Threatening, Hospitalization, Other)
  Sender: DR REDDYS
  Company Number: US-DRL-USA-USA/2025/12/018829

PATIENT
  Age: 34 Year
  Sex: Male

DRUGS (5)
  1. PHENYLEPHRINE [Suspect]
     Active Substance: PHENYLEPHRINE
     Indication: Viral infection
  2. HYDRALAZINE [Concomitant]
     Active Substance: HYDRALAZINE HYDROCHLORIDE
     Indication: Product used for unknown indication
  3. ISOSORBIDE DINITRATE [Concomitant]
     Active Substance: ISOSORBIDE DINITRATE
     Indication: Product used for unknown indication
  4. SPIRONOLACTONE [Concomitant]
     Active Substance: SPIRONOLACTONE
     Indication: Product used for unknown indication
  5. NITROPRUSSIDE [Concomitant]
     Active Substance: NITROPRUSSIDE
     Indication: Product used for unknown indication

REACTIONS (6)
  - Hypertensive emergency [Recovering/Resolving]
  - Cardiac failure [Unknown]
  - Vasogenic cerebral oedema [Unknown]
  - Posterior reversible encephalopathy syndrome [Recovered/Resolved]
  - Papilloedema [Unknown]
  - Product use in unapproved indication [Unknown]
